FAERS Safety Report 14353244 (Version 1)
Quarter: 2018Q1

REPORT INFORMATION
  Report Type: Report from Study
  Country: AR (occurrence: AR)
  Receive Date: 20180105
  Receipt Date: 20180105
  Transmission Date: 20180509
  Serious: Yes (Other)
  Sender: FDA-Public Use
  Company Number: AR-ROCHE-1963414

PATIENT
  Age: 71 Year
  Sex: Male

DRUGS (2)
  1. VISMODEGIB. [Suspect]
     Active Substance: VISMODEGIB
     Indication: BASAL CELL CARCINOMA
     Route: 065
     Dates: start: 20170522, end: 20170612
  2. VISMODEGIB. [Suspect]
     Active Substance: VISMODEGIB
     Route: 065
     Dates: start: 20170707

REACTIONS (2)
  - Hyperamylasaemia [Recovered/Resolved]
  - Hyperbilirubinaemia [Recovered/Resolved]

NARRATIVE: CASE EVENT DATE: 20170610
